FAERS Safety Report 9706572 (Version 1)
Quarter: 2013Q4

REPORT INFORMATION
  Report Type: Spontaneous
  Country: US (occurrence: US)
  Receive Date: 20131125
  Receipt Date: 20131125
  Transmission Date: 20140711
  Serious: No
  Sender: FDA-Public Use
  Company Number: US-009507513-1311USA010087

PATIENT
  Age: 42 Year
  Sex: Female

DRUGS (10)
  1. PRINIVIL [Suspect]
     Indication: HYPERTENSION
     Dosage: 40 MG, UNK
     Route: 048
  2. DOCUSATE SODIUM [Concomitant]
  3. FIRTECAN PEGOL [Concomitant]
  4. ASPIRIN [Concomitant]
  5. ATENOLOL [Concomitant]
  6. NIFEDIPINE [Concomitant]
  7. HYDROCHLOROTHIAZIDE [Concomitant]
  8. OXYCODONE [Concomitant]
  9. AMITRIPTYLINE HYDROCHLORIDE [Concomitant]
  10. DIAZEPAM [Concomitant]

REACTIONS (1)
  - Small bowel angioedema [Recovered/Resolved]
